FAERS Safety Report 10802480 (Version 1)
Quarter: 2015Q1

REPORT INFORMATION
  Report Type: Spontaneous
  Country: US (occurrence: US)
  Receive Date: 20150217
  Receipt Date: 20150217
  Transmission Date: 20150721
  Serious: No
  Sender: FDA-Public Use
  Company Number: US-AMARIN PHARMA, INC.-2014AMR000036

PATIENT
  Sex: Male
  Weight: 131.66 kg

DRUGS (4)
  1. ANTIHYPERTENSIVES [Concomitant]
     Active Substance: UNSPECIFIED INGREDIENT
     Indication: BLOOD PRESSURE
  2. VASCEPA [Suspect]
     Active Substance: ETHYL ICOSAPENTATE
     Indication: SUPPLEMENTATION THERAPY
     Route: 048
     Dates: start: 201405
  3. BACK MEDICATION [Concomitant]
  4. STOMACH MEDICATION [Concomitant]
     Indication: PROPHYLAXIS

REACTIONS (2)
  - No adverse event [Recovered/Resolved]
  - Wrong technique in drug usage process [Recovered/Resolved]
